FAERS Safety Report 13877051 (Version 5)
Quarter: 2018Q1

REPORT INFORMATION
  Report Type: Spontaneous
  Country: US (occurrence: US)
  Receive Date: 20170817
  Receipt Date: 20180115
  Transmission Date: 20180508
  Serious: Yes (Other)
  Sender: FDA-Public Use
  Company Number: PHEH2017US026148

PATIENT
  Age: 35 Year
  Sex: Female

DRUGS (1)
  1. ZOFRAN [Suspect]
     Active Substance: ONDANSETRON HYDROCHLORIDE
     Indication: VOMITING IN PREGNANCY
     Dosage: 1 DF, PRN
     Route: 048
     Dates: start: 20050107, end: 2005

REACTIONS (12)
  - Pre-eclampsia [Unknown]
  - Anhedonia [Unknown]
  - Dizziness [Unknown]
  - Vaginal laceration [Unknown]
  - Injury [Unknown]
  - Anxiety [Unknown]
  - Maternal exposure during pregnancy [Unknown]
  - Product use in unapproved indication [Unknown]
  - Emotional distress [Unknown]
  - Viral infection [Unknown]
  - Irritable bowel syndrome [Unknown]
  - Pain [Unknown]

NARRATIVE: CASE EVENT DATE: 20050816
